FAERS Safety Report 9661632 (Version 2)
Quarter: 2013Q4

REPORT INFORMATION
  Report Type: Spontaneous
  Country: US (occurrence: US)
  Receive Date: 20131031
  Receipt Date: 20131031
  Transmission Date: 20140711
  Serious: No
  Sender: FDA-Public Use
  Company Number: US-PURDUE-USA-2010-0054623

PATIENT
  Age: 64 Year
  Sex: Male
  Weight: 85 kg

DRUGS (2)
  1. OXYCONTIN (NDA 22-272) [Suspect]
     Indication: PAIN
     Dosage: 10 MG, BID
     Dates: start: 2010, end: 201105
  2. PERCOCET                           /00446701/ [Concomitant]
     Indication: PAIN
     Dosage: 5 MG, PRN

REACTIONS (4)
  - Tinnitus [Not Recovered/Not Resolved]
  - Product taste abnormal [Recovered/Resolved]
  - Decreased appetite [Recovered/Resolved]
  - Vomiting [Recovered/Resolved]
